FAERS Safety Report 26034539 (Version 1)
Quarter: 2025Q4

REPORT INFORMATION
  Report Type: Spontaneous
  Country: US (occurrence: US)
  Receive Date: 20251112
  Receipt Date: 20251112
  Transmission Date: 20260118
  Serious: No
  Sender: ROCHE
  Company Number: US-ROCHE-10000430724

PATIENT
  Sex: Male

DRUGS (2)
  1. XOLAIR PFS [Suspect]
     Active Substance: OMALIZUMAB
     Indication: Food allergy
     Dosage: 75MG/0.5 ML
     Route: 058
     Dates: start: 202509
  2. XOLAIR PFS [Suspect]
     Active Substance: OMALIZUMAB
     Dosage: 300MG/2 ML
     Route: 058
     Dates: start: 202509

REACTIONS (1)
  - Sinusitis [Recovering/Resolving]
